FAERS Safety Report 23072064 (Version 4)
Quarter: 2023Q4

REPORT INFORMATION
  Report Type: Spontaneous
  Country: JP (occurrence: JP)
  Receive Date: 20231017
  Receipt Date: 20231229
  Transmission Date: 20240110
  Serious: Yes (Hospitalization, Other)
  Sender: FDA-Public Use
  Company Number: JP-MTPC-MTPC2023-0025066

PATIENT
  Age: 74 Year
  Sex: Female

DRUGS (6)
  1. REMICADE [Suspect]
     Active Substance: INFLIXIMAB
     Indication: Rheumatoid arthritis
     Dosage: 150 MILLIGRAM, QD
     Route: 041
     Dates: start: 201105
  2. REMICADE [Suspect]
     Active Substance: INFLIXIMAB
     Dosage: 150 MILLIGRAM, QD
     Route: 041
     Dates: start: 202211, end: 202211
  3. INFLIXIMAB [Suspect]
     Active Substance: INFLIXIMAB
     Indication: Rheumatoid arthritis
     Dosage: UNK
     Route: 041
     Dates: start: 202301
  4. INFLIXIMAB [Suspect]
     Active Substance: INFLIXIMAB
     Dosage: 150 MILLIGRAM, QD
     Route: 041
     Dates: start: 20230706
  5. METHOTREXATE [Concomitant]
     Active Substance: METHOTREXATE
     Indication: Rheumatoid arthritis
     Dosage: 2 MILLIGRAM, 2/WEEK
     Route: 048
     Dates: start: 20100816, end: 20151019
  6. RHEUMATREX [Concomitant]
     Active Substance: METHOTREXATE SODIUM
     Dosage: 2 MILLIGRAM, 1/WEEK
     Route: 048
     Dates: start: 20151026

REACTIONS (1)
  - Colon cancer [Recovered/Resolved]

NARRATIVE: CASE EVENT DATE: 20230807
